FAERS Safety Report 8215104-5 (Version None)
Quarter: 2012Q1

REPORT INFORMATION
  Report Type: 
  Country: None (occurrence: None)
  Receive Date: 20120316
  Receipt Date: 20120309
  Transmission Date: 20120608
  Serious: Yes (Other)
  Sender: FDA-Public Use
  Company Number: PHHY2012US021854

PATIENT

DRUGS (3)
  1. METHYLDOPA [Suspect]
     Route: 064
  2. HYDRALAZINE HCL [Suspect]
     Route: 064
  3. LABETALOL HCL [Suspect]
     Route: 064

REACTIONS (3)
  - FOETAL EXPOSURE DURING PREGNANCY [None]
  - PREMATURE BABY [None]
  - BRADYCARDIA FOETAL [None]
